FAERS Safety Report 6381522-3 (Version None)
Quarter: 2009Q3

REPORT INFORMATION
  Report Type: 
  Country: None (occurrence: None)
  Receive Date: 20090925
  Receipt Date: 20090911
  Transmission Date: 20100115
  Serious: Yes (Death, Hospitalization)
  Sender: FDA-Public Use
  Company Number: 2009260983

PATIENT
  Age: 71 Year
  Sex: Female
  Weight: 74 kg

DRUGS (6)
  1. FRAGMIN [Suspect]
     Indication: THROMBOSIS PROPHYLAXIS
     Dosage: 5000 IU, 1X/DAY, SUBCUTANEOUS; 5000 IU, 2X/DAY, SUBCUTANEOUS
     Route: 058
     Dates: start: 20090822
  2. FRAGMIN [Suspect]
     Indication: THROMBOSIS PROPHYLAXIS
     Dosage: 5000 IU, 1X/DAY, SUBCUTANEOUS; 5000 IU, 2X/DAY, SUBCUTANEOUS
     Route: 058
     Dates: start: 20090823
  3. KEFZOL [Concomitant]
  4. GENTAMICIN [Concomitant]
  5. METRONIDAZOLE [Concomitant]
  6. MORPHINE [Concomitant]

REACTIONS (4)
  - DRUG INEFFECTIVE [None]
  - POST PROCEDURAL PULMONARY EMBOLISM [None]
  - PULMONARY EMBOLISM [None]
  - VENOUS THROMBOSIS LIMB [None]
